FAERS Safety Report 6515560-4 (Version None)
Quarter: 2009Q4

REPORT INFORMATION
  Report Type: 
  Country: None (occurrence: None)
  Receive Date: 20091223
  Receipt Date: 20091216
  Transmission Date: 20100525
  Serious: Yes (Death, Life-Threatening, Hospitalization)
  Sender: FDA-Public Use
  Company Number: AU-CELGENEUS-008-C5013-09091501

PATIENT
  Sex: Male

DRUGS (16)
  1. CC-5013 [Suspect]
     Indication: NON-HODGKIN'S LYMPHOMA
     Route: 048
     Dates: start: 20090907, end: 20090918
  2. GABAPENTIN [Concomitant]
     Route: 048
  3. RANITIDINE [Concomitant]
     Indication: REFLUX GASTRITIS
     Route: 048
  4. FOLIC ACID [Concomitant]
     Route: 048
  5. FOLIC ACID [Concomitant]
     Route: 048
  6. POTASSIUM [Concomitant]
     Route: 048
  7. ASPIRIN [Concomitant]
     Indication: THROMBOSIS PROPHYLAXIS
     Route: 048
  8. OXYCODONE [Concomitant]
     Indication: ANALGESIC THERAPY
     Route: 048
  9. HYDROXYCHLOROQUINE SULFATE [Concomitant]
     Indication: RHEUMATOID ARTHRITIS
     Route: 048
  10. PREDNISOLONE [Concomitant]
     Indication: ELECTROLYTE IMBALANCE
     Route: 048
  11. VORICONOZOLE [Concomitant]
     Indication: ANTIFUNGAL PROPHYLAXIS
     Route: 048
  12. THYROXIN [Concomitant]
     Indication: THYROID FUNCTION TEST ABNORMAL
     Route: 048
  13. CENTRUM [Concomitant]
     Indication: VITAMIN SUPPLEMENTATION
     Route: 048
  14. HYPROMELLOSE [Concomitant]
  15. FRUSEMIDE [Concomitant]
     Route: 048
  16. TRIMETHOPRIM [Concomitant]
     Indication: ANTIBIOTIC PROPHYLAXIS
     Dosage: 160/800MG
     Route: 048

REACTIONS (2)
  - NEUTROPENIA [None]
  - SEPSIS [None]
